FAERS Safety Report 5542818-8 (Version None)
Quarter: 2007Q4

REPORT INFORMATION
  Report Type: 
  Country: None (occurrence: None)
  Receive Date: 20071210
  Receipt Date: 20071128
  Transmission Date: 20080405
  Serious: Yes (Other)
  Sender: FDA-Public Use
  Company Number: BR-PFIZER INC-2007092319

PATIENT
  Sex: Male
  Weight: 67 kg

DRUGS (2)
  1. ZOLOFT [Suspect]
     Indication: DEPRESSION
     Route: 048
     Dates: start: 20070801, end: 20070901
  2. FRONTAL [Concomitant]
     Route: 048
     Dates: start: 20070801, end: 20070901

REACTIONS (9)
  - ABDOMINAL PAIN UPPER [None]
  - DEAFNESS [None]
  - INSOMNIA [None]
  - MALAISE [None]
  - NECK PAIN [None]
  - PAIN [None]
  - RASH [None]
  - TINNITUS [None]
  - VERTIGO [None]
